FAERS Safety Report 13655914 (Version 1)
Quarter: 2017Q2

REPORT INFORMATION
  Report Type: Spontaneous
  Country: IN (occurrence: IN)
  Receive Date: 20170615
  Receipt Date: 20170615
  Transmission Date: 20170830
  Serious: Yes (Hospitalization, Other)
  Sender: FDA-Public Use
  Company Number: IN-MYLANLABS-2017M1035384

PATIENT

DRUGS (1)
  1. PREDNISOLONE. [Suspect]
     Active Substance: PREDNISOLONE
     Indication: SCLERITIS
     Route: 061

REACTIONS (2)
  - Squamous cell carcinoma [Unknown]
  - Retinal detachment [Unknown]
